FAERS Safety Report 12215365 (Version 2)
Quarter: 2016Q2

REPORT INFORMATION
  Report Type: Report from Study
  Country: BR (occurrence: BR)
  Receive Date: 20160328
  Receipt Date: 20160415
  Transmission Date: 20160815
  Serious: Yes (Other)
  Sender: FDA-Public Use
  Company Number: BR-JNJFOC-20160323464

PATIENT
  Sex: Female

DRUGS (5)
  1. REMICADE [Suspect]
     Active Substance: INFLIXIMAB
     Indication: PSORIASIS
     Route: 042
     Dates: start: 2013
  2. REMICADE [Suspect]
     Active Substance: INFLIXIMAB
     Indication: PSORIASIS
     Route: 042
     Dates: start: 20140331
  3. METHOTREXATE [Concomitant]
     Active Substance: METHOTREXATE
     Route: 065
  4. REMICADE [Suspect]
     Active Substance: INFLIXIMAB
     Indication: PSORIASIS
     Route: 042
     Dates: start: 20150128, end: 20150128
  5. ENDOFOLIN [Concomitant]
     Active Substance: FOLIC ACID
     Route: 065

REACTIONS (1)
  - Lupus-like syndrome [Unknown]
